FAERS Safety Report 5980335-1 (Version None)
Quarter: 2008Q4

REPORT INFORMATION
  Report Type: 
  Country: None (occurrence: None)
  Receive Date: 20081202
  Receipt Date: 20081202
  Transmission Date: 20090506
  Serious: Yes (Disabling)
  Sender: FDA-Public Use
  Company Number: None

PATIENT
  Age: 12 Year
  Sex: Female
  Weight: 43.0917 kg

DRUGS (2)
  1. CREST PRO-HEALTH MOUTHWASH PROCTER + GAMBLE [Suspect]
     Indication: DENTAL DISORDER PROPHYLAXIS
     Dosage: 20 ML QD PO
     Route: 048
     Dates: start: 20080901, end: 20081201
  2. CREST PRO-HEALTH MOUTHWASH PROCTER + GAMBLE [Suspect]
     Indication: DENTAL PLAQUE
     Dosage: 20 ML QD PO
     Route: 048
     Dates: start: 20080901, end: 20081201

REACTIONS (1)
  - TOOTH DISCOLOURATION [None]
